FAERS Safety Report 16417193 (Version 2)
Quarter: 2019Q2

REPORT INFORMATION
  Report Type: Spontaneous
  Country: US (occurrence: US)
  Receive Date: 20190611
  Receipt Date: 20190626
  Transmission Date: 20190711
  Serious: No
  Sender: FDA-Public Use
  Company Number: US-PFIZER INC-2019245133

PATIENT
  Age: 70 Year
  Sex: Male
  Weight: 89.36 kg

DRUGS (1)
  1. LYRICA [Suspect]
     Active Substance: PREGABALIN
     Indication: BACK PAIN
     Dosage: 100 MG, 1X/DAY (50 MG, TWO CAPSULES ONCE A DAY )

REACTIONS (2)
  - Off label use [Unknown]
  - Insomnia [Unknown]
